FAERS Safety Report 8597255-9 (Version None)
Quarter: 2012Q3

REPORT INFORMATION
  Report Type: 
  Country: None (occurrence: None)
  Receive Date: 20120816
  Receipt Date: 20120808
  Transmission Date: 20120928
  Serious: Yes (Hospitalization)
  Sender: FDA-Public Use
  Company Number: US-BIOGENIDEC-2012BI030278

PATIENT
  Age: 26 Year
  Sex: Male

DRUGS (5)
  1. INTERFERON BETA-1A [Suspect]
     Route: 030
     Dates: start: 20120710
  2. INTERFERON BETA-1A [Suspect]
     Route: 030
     Dates: start: 20120716
  3. INTERFERON BETA-1A [Suspect]
     Route: 030
     Dates: start: 20120808
  4. INTERFERON BETA-1A [Suspect]
     Indication: MULTIPLE SCLEROSIS
     Route: 030
     Dates: start: 20120703
  5. INTERFERON BETA-1A [Suspect]
     Route: 030
     Dates: start: 20120723

REACTIONS (3)
  - CENTRAL NERVOUS SYSTEM LESION [None]
  - MULTIPLE SCLEROSIS RELAPSE [None]
  - AGGRESSION [None]
